FAERS Safety Report 4959998-5 (Version None)
Quarter: 2006Q1

REPORT INFORMATION
  Report Type: 
  Country: None (occurrence: None)
  Receive Date: 20060331
  Receipt Date: 20000814
  Transmission Date: 20060701
  Serious: Yes (Life-Threatening, Hospitalization, Disabling, Congenital Anomaly)
  Sender: FDA-Public Use
  Company Number: CA-MERCK-00088555B1

PATIENT
  Age: 0 Day
  Sex: Female
  Weight: 3 kg

DRUGS (2)
  1. PRINIVIL [Suspect]
     Indication: ESSENTIAL HYPERTENSION
     Dates: start: 19940101, end: 20000101
  2. PRINIVIL [Suspect]
     Dates: start: 20000101

REACTIONS (37)
  - ACIDOSIS [None]
  - ANURIA [None]
  - BLOOD CREATININE INCREASED [None]
  - BLOOD UREA INCREASED [None]
  - BREECH PRESENTATION [None]
  - CONGENITAL ORAL MALFORMATION [None]
  - DEFORMITY THORAX [None]
  - DIALYSIS [None]
  - DRUG EXPOSURE DURING PREGNANCY [None]
  - DRUG TOXICITY [None]
  - DYSPNOEA [None]
  - EAR MALFORMATION [None]
  - FINGER DEFORMITY [None]
  - HEAD CIRCUMFERENCE ABNORMAL [None]
  - HEART DISEASE CONGENITAL [None]
  - HYPERKALAEMIA [None]
  - HYPONATRAEMIA [None]
  - HYPOTENSION [None]
  - HYPOTONIA NEONATAL [None]
  - INTRA-UTERINE DEATH [None]
  - LUNG INFILTRATION [None]
  - METABOLIC ACIDOSIS [None]
  - MICROCEPHALY [None]
  - MULTI-ORGAN FAILURE [None]
  - NASAL DISORDER [None]
  - NEONATAL DISORDER [None]
  - NEONATAL RESPIRATORY DISTRESS SYNDROME [None]
  - OLIGOHYDRAMNIOS [None]
  - PREMATURE RUPTURE OF MEMBRANES [None]
  - PULMONARY HYPOPLASIA [None]
  - RENAL FAILURE [None]
  - RESPIRATORY DISTRESS [None]
  - RETROGNATHIA [None]
  - SEPSIS NEONATAL [None]
  - SKIN DISORDER [None]
  - TACHYCARDIA [None]
  - UPPER LIMB DEFORMITY [None]
